FAERS Safety Report 9859066 (Version 2)
Quarter: 2014Q1

REPORT INFORMATION
  Report Type: Spontaneous
  Country: JP (occurrence: JP)
  Receive Date: 20140131
  Receipt Date: 20140131
  Transmission Date: 20141002
  Serious: Yes (Life-Threatening, Disabling, Other)
  Sender: FDA-Public Use
  Company Number: JP-TAKEDA-0238688

PATIENT
  Age: 77 Year
  Sex: Male

DRUGS (7)
  1. TACHOSIL [Suspect]
     Indication: PROPHYLAXIS
     Dosage: 1 DF(1 SHEET OF REGULAR SIZE), QD
     Route: 050
     Dates: start: 20130314, end: 20130314
  2. TACHOSIL [Suspect]
     Indication: HAEMOSTASIS
  3. WYSTAL [Concomitant]
     Indication: INTERSTITIAL LUNG DISEASE
     Dosage: 1 G, BID
     Dates: start: 20130317, end: 20130320
  4. INOVAN [Concomitant]
     Indication: CIRCULATORY COLLAPSE
     Dosage: 500 MG, QD
     Dates: start: 20130317, end: 20130320
  5. NOR-ADRENALIN [Concomitant]
     Indication: CIRCULATORY COLLAPSE
     Dosage: 7 MG, QD
     Dates: start: 20130317, end: 20130320
  6. MIDAZOLAM [Concomitant]
     Indication: INTERSTITIAL LUNG DISEASE
     Dosage: 70 MG, QD
     Dates: start: 20130317, end: 20130320
  7. PRECEDEX [Concomitant]
     Indication: INTERSTITIAL LUNG DISEASE
     Dosage: 700 ?G, QD
     Dates: start: 20130317, end: 20130320

REACTIONS (2)
  - Interstitial lung disease [Recovered/Resolved]
  - Circulatory collapse [Recovered/Resolved]
